FAERS Safety Report 5196332-2 (Version None)
Quarter: 2007Q1

REPORT INFORMATION
  Report Type: 
  Country: None (occurrence: None)
  Receive Date: 20070102
  Receipt Date: 20061221
  Transmission Date: 20070707
  Serious: Yes (Hospitalization)
  Sender: FDA-Public Use
  Company Number: US-PFIZER INC-2006156104

PATIENT
  Sex: Female

DRUGS (3)
  1. CHANTIX [Suspect]
     Indication: SMOKING CESSATION THERAPY
  2. VITAMIN CAP [Concomitant]
  3. IRON [Concomitant]

REACTIONS (5)
  - BRONCHITIS [None]
  - DIARRHOEA [None]
  - EMOTIONAL DISORDER [None]
  - INSOMNIA [None]
  - NASOPHARYNGITIS [None]
